FAERS Safety Report 5808113-4 (Version None)
Quarter: 2008Q3

REPORT INFORMATION
  Report Type: 
  Country: None (occurrence: None)
  Receive Date: 20080711
  Receipt Date: 20080703
  Transmission Date: 20090109
  Serious: Yes (Hospitalization)
  Sender: FDA-Public Use
  Company Number: JP-PFIZER INC-2008057274

PATIENT
  Age: 82 Year
  Sex: Male

DRUGS (3)
  1. CELECOX [Suspect]
     Indication: OSTEOARTHRITIS
     Route: 048
     Dates: start: 20071012, end: 20080619
  2. TAMSULOSIN HCL [Concomitant]
     Dosage: DAILY DOSE:.2MG
     Route: 048
     Dates: start: 20020926
  3. MAGNESIUM OXIDE [Concomitant]
     Route: 048

REACTIONS (1)
  - LOSS OF CONSCIOUSNESS [None]
